FAERS Safety Report 17582257 (Version 1)
Quarter: 2020Q1

REPORT INFORMATION
  Report Type: Spontaneous
  Country: BE (occurrence: BE)
  Receive Date: 20200325
  Receipt Date: 20200325
  Transmission Date: 20200409
  Serious: Yes (Congenital Anomaly)
  Sender: FDA-Public Use
  Company Number: BE-PFIZER INC-2020083834

PATIENT
  Sex: Female

DRUGS (6)
  1. CLAMOXYL [AMOXICILLIN] [Concomitant]
     Active Substance: AMOXICILLIN
     Indication: AMNIORRHEXIS
     Dosage: 500 MG, 1X/DAY
     Route: 048
     Dates: start: 20191215, end: 20191220
  2. CYTOTEC [Suspect]
     Active Substance: MISOPROSTOL
     Indication: ABORTION INDUCED
     Dosage: UNK
     Route: 067
     Dates: start: 20190821
  3. CELESTONE [Concomitant]
     Active Substance: BETAMETHASONE
     Indication: OVULATION INDUCTION
     Dosage: 24 MG, SINGLE
     Dates: start: 20191213, end: 20191214
  4. CLAMOXYL [AMOXICILLIN] [Concomitant]
     Active Substance: AMOXICILLIN
     Dosage: 3 DF, DAILY
     Route: 048
     Dates: start: 20191215, end: 20191220
  5. AZITHROMYCINE [Concomitant]
     Active Substance: AZITHROMYCIN
     Indication: AMNIORRHEXIS
     Dosage: 1 G, SINGLE
     Route: 048
  6. BENZYLPENICILLIN [Concomitant]
     Active Substance: PENICILLIN G
     Indication: AMNIORRHEXIS
     Dosage: UNK (2 UG THEN 2 UG PER 24H)
     Route: 042
     Dates: start: 20191213, end: 20191214

REACTIONS (5)
  - Drug ineffective for unapproved indication [Unknown]
  - Off label use [Unknown]
  - Premature rupture of membranes [Unknown]
  - Incorrect route of product administration [Unknown]
  - Maternal exposure during pregnancy [Unknown]

NARRATIVE: CASE EVENT DATE: 20190821
